FAERS Safety Report 8824795 (Version 1)
Quarter: 2012Q4

REPORT INFORMATION
  Report Type: 
  Country: US (occurrence: US)
  Receive Date: 20121004
  Receipt Date: 20121004
  Transmission Date: 20130627
  Serious: Yes (Death)
  Sender: FDA-Public Use
  Company Number: US-ROCHE-1131044

PATIENT
  Sex: Male

DRUGS (4)
  1. RITUXAN [Suspect]
     Indication: WALDENSTROM^S MACROGLOBULINAEMIA
     Route: 065
     Dates: start: 200001, end: 200002
  2. RITUXAN [Suspect]
     Indication: OFF LABEL USE
     Route: 065
     Dates: start: 200512, end: 20060619
  3. RITUXAN [Suspect]
     Indication: NON-HODGKIN^S LYMPHOMA
  4. ALTACE [Concomitant]
     Route: 065

REACTIONS (7)
  - Non-Hodgkin^s lymphoma [Fatal]
  - Fatigue [Unknown]
  - Drug ineffective [Unknown]
  - Epistaxis [Unknown]
  - Pyrexia [Unknown]
  - Chills [Unknown]
  - Scleral discolouration [Unknown]
